FAERS Safety Report 20499384 (Version 1)
Quarter: 2022Q1

REPORT INFORMATION
  Report Type: Spontaneous
  Country: US (occurrence: US)
  Receive Date: 20220222
  Receipt Date: 20220222
  Transmission Date: 20220423
  Serious: Yes (Other)
  Sender: FDA-Public Use
  Company Number: US-SANOFI-00976288

PATIENT
  Age: 83 Year
  Sex: Female

DRUGS (1)
  1. MULTAQ [Suspect]
     Active Substance: DRONEDARONE
     Indication: Atrial fibrillation
     Dosage: 400MG, BID
     Dates: start: 2017

REACTIONS (6)
  - Mycobacterial infection [Unknown]
  - Pulmonary toxicity [Unknown]
  - Pulmonary fibrosis [Unknown]
  - Pleural thickening [Unknown]
  - Benign lung neoplasm [Unknown]
  - Cough [Unknown]
